FAERS Safety Report 9485116 (Version 2)
Quarter: 2013Q3

REPORT INFORMATION
  Report Type: Spontaneous
  Country: US (occurrence: US)
  Receive Date: 20130828
  Receipt Date: 20130828
  Transmission Date: 20140515
  Serious: No
  Sender: FDA-Public Use
  Company Number: US-ABBOTT-13P-163-1123839-00

PATIENT
  Age: 68 Year
  Sex: Male
  Weight: 131.21 kg

DRUGS (16)
  1. ANDROGEL [Suspect]
     Indication: BLOOD TESTOSTERONE DECREASED
     Dosage: TWO PUMPS DAILY
     Dates: start: 20130715
  2. INSULIN [Concomitant]
     Indication: DIABETES MELLITUS
  3. LOSARTAN [Concomitant]
     Indication: HYPERTENSION
  4. ISOSORBIDE [Concomitant]
     Indication: ANGINA PECTORIS
  5. CLONIDINE [Concomitant]
     Indication: HYPERTENSION
  6. GABAPENTIN [Concomitant]
     Indication: PAIN
  7. TOPROL [Concomitant]
     Indication: HYPERTENSION
  8. FUROSEMIDE [Concomitant]
     Indication: FLUID RETENTION
  9. TIMOLOL [Concomitant]
     Indication: GLAUCOMA
  10. LUMIGAN [Concomitant]
     Indication: GLAUCOMA
  11. ASPIRIN [Concomitant]
     Indication: CARDIOVASCULAR EVENT PROPHYLAXIS
  12. COLACE [Concomitant]
     Indication: CONSTIPATION
  13. VITAMIN C [Concomitant]
     Indication: VITAMIN SUPPLEMENTATION
  14. VITAMIN D NOS [Concomitant]
     Indication: VITAMIN SUPPLEMENTATION
  15. VITAMIN B1 [Concomitant]
     Indication: VITAMIN SUPPLEMENTATION
  16. FIBER LAX [Concomitant]
     Indication: CONSTIPATION

REACTIONS (4)
  - Cough [Not Recovered/Not Resolved]
  - Insomnia [Recovered/Resolved]
  - Anxiety [Recovered/Resolved]
  - Dyspnoea [Recovered/Resolved]
